FAERS Safety Report 9701192 (Version 2)
Quarter: 2013Q4

REPORT INFORMATION
  Report Type: Spontaneous
  Country: FR (occurrence: FR)
  Receive Date: 20131121
  Receipt Date: 20131202
  Transmission Date: 20140711
  Serious: Yes (Hospitalization)
  Sender: FDA-Public Use
  Company Number: FR-PFIZER INC-2013327713

PATIENT
  Age: 52 Year
  Sex: Female

DRUGS (5)
  1. CAMPTO [Suspect]
     Dosage: 290 MG, DAILY COURSE 2 DAY 1
     Route: 042
     Dates: start: 20131024, end: 20131024
  2. OXALIPLATIN ACCORD [Concomitant]
     Dosage: 90 MG, CYCLIC COURSE 1 DAY 1 (C1D1)
     Route: 042
     Dates: start: 20131010
  3. OXALIPLATIN ACCORD [Concomitant]
     Dosage: 135 MG, CYCLIC COURSE 2 DAY 1 (C2D1)
     Route: 042
     Dates: start: 20131024, end: 20131024
  4. FLUOROURACIL [Concomitant]
  5. FOLINIC ACID [Concomitant]

REACTIONS (3)
  - Hypotension [Recovered/Resolved]
  - Hyperaesthesia [Recovered/Resolved]
  - Vomiting [Recovered/Resolved]
